FAERS Safety Report 7686958-6 (Version None)
Quarter: 2011Q3

REPORT INFORMATION
  Report Type: 
  Country: None (occurrence: None)
  Receive Date: 20110816
  Receipt Date: 20110809
  Transmission Date: 20111222
  Serious: Yes (Death, Life-Threatening, Hospitalization, Other)
  Sender: FDA-Public Use
  Company Number: NL-GENZYME-200821164GPV

PATIENT
  Sex: Female

DRUGS (49)
  1. CAMPATH [Suspect]
     Dosage: 30 MG, DAYS 1, 5, 10
     Route: 058
  2. CAMPATH [Suspect]
     Dosage: 30 MG, DAYS 1, 5, 10
     Route: 058
  3. CYCLOPHOSPHAMIDE [Suspect]
     Indication: T-CELL LYMPHOMA
     Dosage: 750 MG/M2, ONCE Q14DAYS
     Route: 042
     Dates: end: 20060301
  4. CYCLOPHOSPHAMIDE [Suspect]
     Dosage: 750 MG/M2, ONCE Q14DAYS
     Route: 042
     Dates: end: 20060301
  5. CYCLOPHOSPHAMIDE [Suspect]
     Dosage: 750 MG/M2, ONCE Q14DAYS
     Route: 042
     Dates: end: 20060301
  6. VINCRISTINE [Suspect]
     Dosage: 1.4 MG/M2, ONCE DAY 1
     Route: 042
     Dates: end: 20060301
  7. VESICARE [Concomitant]
     Indication: PRODUCT USED FOR UNKNOWN INDICATION
     Dosage: 5 MG, UNK
  8. IBUPROFEN [Concomitant]
     Indication: PRODUCT USED FOR UNKNOWN INDICATION
     Dosage: 600 MG, UNK
  9. CAMPATH [Suspect]
     Dosage: 30 MG, DAYS 1, 5, 10
     Route: 058
  10. DOXORUBICIN HCL [Suspect]
     Dosage: 50 MG/M2, ONCE DAY 1
     Route: 042
     Dates: end: 20060301
  11. VINCRISTINE [Suspect]
     Dosage: 1.4 MG/M2, ONCE DAY 1
     Route: 042
     Dates: end: 20060301
  12. VALACYCLOVIR HYDROCHLORIDE [Concomitant]
     Indication: PRODUCT USED FOR UNKNOWN INDICATION
     Dosage: 500 MG BID
  13. CAMPATH [Suspect]
     Indication: PRODUCT USED FOR UNKNOWN INDICATION
     Dosage: 3 MG, DAY 1
     Route: 058
     Dates: end: 20080301
  14. CAMPATH [Suspect]
     Dosage: 30 MG, DAY 10
     Route: 058
  15. CAMPATH [Suspect]
     Dosage: 30 MG, DAYS 1, 5, 10
     Route: 058
  16. DOXORUBICIN HCL [Suspect]
     Indication: T-CELL LYMPHOMA
     Dosage: 50 MG/M2, ONCE DAY 1
     Route: 042
     Dates: end: 20060301
  17. DOXORUBICIN HCL [Suspect]
     Dosage: 50 MG/M2, ONCE DAY 1
     Route: 042
     Dates: end: 20060301
  18. VINCRISTINE [Suspect]
     Dosage: 1.4 MG/M2, ONCE DAY 1
     Route: 042
     Dates: end: 20060301
  19. FLUCONAZOLE [Concomitant]
     Indication: ANTIFUNGAL PROPHYLAXIS
     Dosage: 50 MG, QD
  20. CAMPATH [Suspect]
     Dosage: 30 MG, DAYS 1, 5, 10
     Route: 058
  21. CAMPATH [Suspect]
     Dosage: 30 MG, DAYS 1, 5, 10
     Route: 058
  22. CYCLOPHOSPHAMIDE [Suspect]
     Dosage: 750 MG/M2, ONCE Q14DAYS
     Route: 042
     Dates: end: 20060301
  23. DOXORUBICIN HCL [Suspect]
     Dosage: 50 MG/M2, ONCE DAY 1
     Route: 042
     Dates: end: 20060301
  24. DOXORUBICIN HCL [Suspect]
     Dosage: 50 MG/M2, ONCE DAY 1
     Route: 042
     Dates: end: 20060301
  25. VINCRISTINE [Suspect]
     Dosage: 1.4 MG/M2, ONCE DAY 1
     Route: 042
     Dates: end: 20060301
  26. PEGFILGRASTIM [Concomitant]
     Indication: PRODUCT USED FOR UNKNOWN INDICATION
     Dosage: 6 MG, ONCE, DAY 2
     Route: 058
  27. CAMPATH [Suspect]
     Dosage: 30 MG, DAYS 1, 5, 10
     Route: 058
  28. CAMPATH [Suspect]
     Dosage: 30 MG, UNK
     Route: 065
     Dates: start: 20060324, end: 20060324
  29. DOXORUBICIN HCL [Suspect]
     Dosage: 50 MG/M2, ONCE DAY 1
     Route: 042
     Dates: end: 20060301
  30. VINCRISTINE [Suspect]
     Dosage: 1.4 MG/M2, ONCE DAY 1
     Route: 042
     Dates: end: 20060301
  31. VINCRISTINE [Suspect]
     Dosage: 1.4 MG/M2, ONCE DAY 1
     Route: 042
     Dates: end: 20060301
  32. ACETAMINOPHEN [Concomitant]
     Indication: PREMEDICATION
     Dosage: 1000 MG, UNK
  33. ALLOPURINOL [Concomitant]
     Indication: PROPHYLAXIS
     Dosage: 300 MG, UNK
  34. CYCLOPHOSPHAMIDE [Suspect]
     Dosage: 750 MG/M2, ONCE Q14DAYS
     Route: 042
     Dates: end: 20060301
  35. DOXORUBICIN HCL [Suspect]
     Dosage: 50 MG/M2, ONCE DAY 1
     Route: 042
     Dates: end: 20060301
  36. VINCRISTINE [Suspect]
     Dosage: 1.4 MG/M2, ONCE DAY 1
     Route: 042
     Dates: end: 20060301
  37. VALACICLOVIR [Concomitant]
     Indication: ANTIVIRAL PROPHYLAXIS
     Dosage: 500 MG, BID
  38. ANTIHISTAMINES [Concomitant]
     Indication: PREMEDICATION
  39. NORFLOXACIN [Concomitant]
     Indication: PRODUCT USED FOR UNKNOWN INDICATION
     Dosage: 400 MG BID
  40. CAMPATH [Suspect]
     Dosage: 10 MG, DAY 5
     Route: 058
  41. CYCLOPHOSPHAMIDE [Suspect]
     Dosage: 750 MG/M2, ONCE Q14DAYS
     Route: 042
     Dates: end: 20060301
  42. CYCLOPHOSPHAMIDE [Suspect]
     Dosage: 750 MG/M2, ONCE Q14DAYS
     Route: 042
     Dates: end: 20060301
  43. CYCLOPHOSPHAMIDE [Suspect]
     Dosage: 750 MG/M2, ONCE Q14DAYS
     Route: 042
     Dates: end: 20060301
  44. DOXORUBICIN HCL [Suspect]
     Dosage: 50 MG/M2, ONCE DAY 1
     Route: 042
     Dates: end: 20060301
  45. VINCRISTINE [Suspect]
     Indication: T-CELL LYMPHOMA
     Dosage: 1.4 MG/M2, ONCE DAY 1
     Route: 042
     Dates: end: 20060301
  46. PREDNISONE [Suspect]
     Indication: T-CELL LYMPHOMA
     Dosage: 100 MG, QDX5 DAYS 1-5
     Route: 048
     Dates: end: 20060301
  47. COTRIM [Concomitant]
     Indication: INFECTION PROPHYLAXIS
     Dosage: 480 MG, BID, 3X/W
     Route: 065
  48. MODAFINIL [Concomitant]
     Indication: PRODUCT USED FOR UNKNOWN INDICATION
     Dosage: 100 MG, UNK
  49. OXAZEPAM [Concomitant]
     Indication: PRODUCT USED FOR UNKNOWN INDICATION
     Dosage: 10 MG, UNK

REACTIONS (8)
  - DIFFUSE LARGE B-CELL LYMPHOMA [None]
  - BRAIN NEOPLASM [None]
  - EPILEPSY [None]
  - T-CELL LYMPHOMA RECURRENT [None]
  - LYMPHOPROLIFERATIVE DISORDER [None]
  - EPSTEIN-BARR VIRUS INFECTION [None]
  - LYMPHOPENIA [None]
  - CYSTITIS HAEMORRHAGIC [None]
